FAERS Safety Report 10571226 (Version 3)
Quarter: 2014Q4

REPORT INFORMATION
  Report Type: Spontaneous
  Country: JP (occurrence: JP)
  Receive Date: 20141107
  Receipt Date: 20141120
  Transmission Date: 20150529
  Serious: Yes (Hospitalization)
  Sender: FDA-Public Use
  Company Number: JP-ABBVIE-13P-087-1064193-00

PATIENT
  Age: 46 Year
  Sex: Female

DRUGS (1)
  1. LEUPLIN [Suspect]
     Active Substance: LEUPROLIDE ACETATE
     Indication: ENDOMETRIOSIS
     Route: 058
     Dates: start: 2010

REACTIONS (1)
  - Cerebral vasoconstriction [Recovering/Resolving]

NARRATIVE: CASE EVENT DATE: 201101
